FAERS Safety Report 8041192-5 (Version None)
Quarter: 2012Q1

REPORT INFORMATION
  Report Type: 
  Country: None (occurrence: None)
  Receive Date: 20120112
  Receipt Date: 20120106
  Transmission Date: 20120608
  Serious: Yes (Hospitalization)
  Sender: FDA-Public Use
  Company Number: FR-JNJFOC-20120101764

PATIENT
  Age: 56 Year
  Sex: Female

DRUGS (15)
  1. OXACILLIN [Suspect]
     Route: 042
     Dates: start: 20110601, end: 20110601
  2. CLINDAMYCIN HCL [Suspect]
     Indication: SEPSIS
     Route: 048
     Dates: start: 20110601, end: 20110801
  3. OXACILLIN [Suspect]
     Indication: INTERVERTEBRAL DISCITIS
     Route: 042
     Dates: start: 20110601, end: 20110601
  4. OXACILLIN [Suspect]
     Route: 042
     Dates: start: 20110601, end: 20110601
  5. CLINDAMYCIN HCL [Suspect]
     Indication: ENDOCARDITIS
     Route: 048
     Dates: start: 20110601, end: 20110801
  6. OXACILLIN [Suspect]
     Indication: ENDOCARDITIS
     Route: 042
     Dates: start: 20110801, end: 20110805
  7. OXACILLIN [Suspect]
     Indication: SEPSIS
     Route: 042
     Dates: start: 20110801, end: 20110805
  8. GENTAMICIN [Concomitant]
     Route: 065
     Dates: start: 20110601, end: 20110601
  9. NEXIUM [Concomitant]
     Route: 065
  10. CLINDAMYCIN HCL [Suspect]
     Indication: INTERVERTEBRAL DISCITIS
     Route: 048
     Dates: start: 20110601, end: 20110801
  11. PIPERACILLIN AND TAZOBACTAM [Concomitant]
     Route: 065
     Dates: start: 20110801
  12. LEVOFLOXACIN [Suspect]
     Indication: INTERVERTEBRAL DISCITIS
     Route: 048
     Dates: end: 20110805
  13. LEVOFLOXACIN [Suspect]
     Indication: ENDOCARDITIS
     Route: 048
     Dates: end: 20110805
  14. LEVOFLOXACIN [Suspect]
     Indication: SEPSIS
     Route: 048
     Dates: end: 20110805
  15. OXACILLIN [Suspect]
     Route: 042
     Dates: start: 20110801, end: 20110805

REACTIONS (3)
  - THROMBOCYTOPENIA [None]
  - PANCYTOPENIA [None]
  - SEPTIC SHOCK [None]
